FAERS Safety Report 5580089-7 (Version None)
Quarter: 2008Q1

REPORT INFORMATION
  Report Type: 
  Country: None (occurrence: None)
  Receive Date: 20080103
  Receipt Date: 20071227
  Transmission Date: 20080703
  Serious: Yes (Hospitalization, Other)
  Sender: FDA-Public Use
  Company Number: AU-AVENTIS-200721812GDDC

PATIENT
  Age: 73 Year
  Sex: Female

DRUGS (10)
  1. ARAVA [Suspect]
     Indication: RHEUMATOID ARTHRITIS
     Route: 048
     Dates: start: 20050101
  2. WARFARIN SODIUM [Suspect]
  3. METOPROLOL [Concomitant]
  4. AMIODARONE HCL [Concomitant]
  5. EFFEXOR [Concomitant]
  6. GLUCOSAMINE [Concomitant]
  7. FISH OIL [Concomitant]
  8. PARACETAMOL [Concomitant]
  9. PLAQUENIL                          /00072601/ [Concomitant]
  10. PREDNISONE TAB [Concomitant]

REACTIONS (4)
  - HAEMORRHAGE [None]
  - HEAD INJURY [None]
  - HIP FRACTURE [None]
  - LOSS OF CONSCIOUSNESS [None]
